FAERS Safety Report 22000424 (Version 2)
Quarter: 2023Q2

REPORT INFORMATION
  Report Type: Spontaneous
  Country: CL (occurrence: CL)
  Receive Date: 20230216
  Receipt Date: 20230405
  Transmission Date: 20230721
  Serious: No
  Sender: FDA-Public Use
  Company Number: CL-PFIZER INC-PV202300030145

PATIENT

DRUGS (1)
  1. GENOTROPIN [Suspect]
     Active Substance: SOMATROPIN

REACTIONS (5)
  - Device difficult to use [Unknown]
  - Device mechanical issue [Unknown]
  - Device information output issue [Unknown]
  - Incorrect dose administered by device [Unknown]
  - Device leakage [Unknown]
